FAERS Safety Report 5387960-X (Version None)
Quarter: 2007Q3

REPORT INFORMATION
  Report Type: 
  Country: None (occurrence: None)
  Receive Date: 20070716
  Receipt Date: 20061003
  Transmission Date: 20080115
  Serious: No
  Sender: FDA-Public Use
  Company Number: A0622021A

PATIENT
  Age: 52 Year
  Sex: Male

DRUGS (2)
  1. NICORETTE [Suspect]
     Dates: start: 20060826
  2. NICODERM CQ [Suspect]

REACTIONS (4)
  - APPLICATION SITE RASH [None]
  - DRUG INEFFECTIVE [None]
  - DYSPEPSIA [None]
  - INTENTIONAL DRUG MISUSE [None]
